FAERS Safety Report 14165534 (Version 3)
Quarter: 2018Q1

REPORT INFORMATION
  Report Type: Spontaneous
  Country: US (occurrence: US)
  Receive Date: 20171107
  Receipt Date: 20180215
  Transmission Date: 20180508
  Serious: Yes (Hospitalization, Other)
  Sender: FDA-Public Use
  Company Number: US-BEH-2017084954

PATIENT
  Age: 77 Year
  Sex: Female

DRUGS (2)
  1. KCENTRA [Suspect]
     Active Substance: COAGULATION FACTOR IX HUMAN\COAGULATION FACTOR VII HUMAN\COAGULATION FACTOR X HUMAN\PROTEIN C\PROTEIN S HUMAN\PROTHROMBIN
     Indication: ABDOMINAL WALL HAEMATOMA
     Dosage: 3500 IU, SINGLE
     Route: 042
     Dates: start: 20171105, end: 20171105
  2. KCENTRA [Suspect]
     Active Substance: COAGULATION FACTOR IX HUMAN\COAGULATION FACTOR VII HUMAN\COAGULATION FACTOR X HUMAN\PROTEIN C\PROTEIN S HUMAN\PROTHROMBIN
     Indication: INTERNATIONAL NORMALISED RATIO INCREASED

REACTIONS (4)
  - Infusion site extravasation [Recovering/Resolving]
  - Limb injury [Recovering/Resolving]
  - Administration site swelling [Recovering/Resolving]
  - Administration site bruise [Recovering/Resolving]

NARRATIVE: CASE EVENT DATE: 20171105
